FAERS Safety Report 7815049-6 (Version None)
Quarter: 2011Q4

REPORT INFORMATION
  Report Type: 
  Country: None (occurrence: None)
  Receive Date: 20111014
  Receipt Date: 20111004
  Transmission Date: 20120403
  Serious: Yes (Hospitalization)
  Sender: FDA-Public Use
  Company Number: CA-JNJFOC-20111004654

PATIENT
  Sex: Female
  Weight: 53 kg

DRUGS (1)
  1. REMICADE [Suspect]
     Indication: PRODUCT USED FOR UNKNOWN INDICATION
     Route: 042

REACTIONS (6)
  - COORDINATION ABNORMAL [None]
  - VISUAL IMPAIRMENT [None]
  - MUSCULAR WEAKNESS [None]
  - HYPERHIDROSIS [None]
  - HEADACHE [None]
  - TREMOR [None]
